FAERS Safety Report 4673919-4 (Version None)
Quarter: 2005Q2

REPORT INFORMATION
  Report Type: 
  Country: None (occurrence: None)
  Receive Date: 20050523
  Receipt Date: 20050207
  Transmission Date: 20051028
  Serious: No
  Sender: FDA-Public Use
  Company Number: HQWYE262511FEB05

PATIENT
  Age: 51 Year
  Sex: Female
  Weight: 59.93 kg

DRUGS (1)
  1. ALAVERT D-12 (LORATADINE/PSEUDOEPHEDRINE SULFATE, TABLET, EXTENDED REL [Suspect]
     Dosage: 1 TABLET DAILY, ORAL
     Route: 048
     Dates: start: 20050205, end: 20050206

REACTIONS (2)
  - DIZZINESS [None]
  - DRUG EFFECT DECREASED [None]
